FAERS Safety Report 17520703 (Version 5)
Quarter: 2020Q3

REPORT INFORMATION
  Report Type: Spontaneous
  Country: US (occurrence: US)
  Receive Date: 20200310
  Receipt Date: 20200928
  Transmission Date: 20201102
  Serious: Yes (Other)
  Sender: FDA-Public Use
  Company Number: US-PFIZER INC-2020049683

PATIENT
  Age: 66 Year
  Sex: Female

DRUGS (8)
  1. DUPIXENT [Concomitant]
     Active Substance: DUPILUMAB
     Indication: DYSPNOEA
  2. PREDNISONE. [Concomitant]
     Active Substance: PREDNISONE
     Indication: ASTHMA
     Dosage: UNK (SHE WAS UP TO 50 MG DAILY FOR A PERIOD OF TIME)
     Dates: start: 2020
  3. LISINOPRIL. [Concomitant]
     Active Substance: LISINOPRIL
     Dosage: UNK
  4. PREDNISONE. [Concomitant]
     Active Substance: PREDNISONE
     Dosage: 20 MG, DAILY
  5. DUPIXENT [Concomitant]
     Active Substance: DUPILUMAB
     Indication: ASTHMA
     Dosage: UNK
     Dates: start: 2019
  6. LEFLUNOMIDE. [Concomitant]
     Active Substance: LEFLUNOMIDE
     Dosage: UNK
  7. XELJANZ [Suspect]
     Active Substance: TOFACITINIB CITRATE
     Indication: RHEUMATOID ARTHRITIS
     Dosage: 5 MG, 2X/DAY
     Route: 048
     Dates: start: 20200130, end: 202004
  8. XELJANZ [Suspect]
     Active Substance: TOFACITINIB CITRATE
     Dosage: 5 MG, 2X/DAY
     Route: 048
     Dates: start: 20200505, end: 2020

REACTIONS (13)
  - Disease recurrence [Unknown]
  - Drug ineffective [Unknown]
  - Frustration tolerance decreased [Unknown]
  - Dysgeusia [Unknown]
  - Asthma [Unknown]
  - Headache [Unknown]
  - Diarrhoea [Unknown]
  - Gait disturbance [Unknown]
  - Rheumatoid arthritis [Recovering/Resolving]
  - Pneumonia [Unknown]
  - Breathing-related sleep disorder [Recovering/Resolving]
  - Salivary hypersecretion [Unknown]
  - Electric shock [Recovering/Resolving]

NARRATIVE: CASE EVENT DATE: 2020
